FAERS Safety Report 8954078 (Version 1)
Quarter: 2012Q4

REPORT INFORMATION
  Report Type: 
  Country: US (occurrence: US)
  Receive Date: 20121207
  Receipt Date: 20121207
  Transmission Date: 20130627
  Serious: No
  Sender: FDA-Public Use
  Company Number: US-BAYER-2012-128793

PATIENT
  Age: 40 Year
  Sex: Male
  Weight: 91 kg

DRUGS (2)
  1. ALEVE CAPLET/TABLET,MIDOL EXTENDED RELIEF CAPLET [Suspect]
     Indication: PAIN RELIEF
     Dosage: UNK
     Route: 048
     Dates: start: 2011, end: 20121203
  2. ALEVE CAPLET/TABLET,MIDOL EXTENDED RELIEF CAPLET [Suspect]
     Indication: PAIN RELIEF
     Dosage: UNK
     Route: 048
     Dates: start: 2011, end: 20121203

REACTIONS (3)
  - Drug ineffective [None]
  - Drug ineffective [None]
  - Incorrect drug administration duration [None]
